FAERS Safety Report 9705560 (Version 2)
Quarter: 2015Q3

REPORT INFORMATION
  Report Type: Spontaneous
  Country: US (occurrence: US)
  Receive Date: 20131122
  Receipt Date: 20150803
  Transmission Date: 20151125
  Serious: No
  Sender: FDA-Public Use
  Company Number: US-GILEAD-2008-0016934

PATIENT
  Age: 60 Year
  Sex: Female

DRUGS (13)
  1. XIFAXAN [Concomitant]
     Active Substance: RIFAXIMIN
  2. LETAIRIS [Suspect]
     Active Substance: AMBRISENTAN
     Indication: PULMONARY ARTERIAL HYPERTENSION
     Route: 048
     Dates: start: 20080616
  3. BUMETANIDE. [Concomitant]
     Active Substance: BUMETANIDE
  4. POTASSIUM ACETATE. [Concomitant]
     Active Substance: POTASSIUM ACETATE
  5. MORPHINE SULFATE. [Concomitant]
     Active Substance: MORPHINE SULFATE
  6. NADOLOL. [Concomitant]
     Active Substance: NADOLOL
  7. SPIRONOLACTONE. [Concomitant]
     Active Substance: SPIRONOLACTONE
  8. LEVEMIR [Concomitant]
     Active Substance: INSULIN DETEMIR
  9. ALPRAZOLAM. [Concomitant]
     Active Substance: ALPRAZOLAM
  10. LEVOXYL [Concomitant]
     Active Substance: LEVOTHYROXINE SODIUM
  11. PREDNISOLONE. [Concomitant]
     Active Substance: PREDNISOLONE
  12. CITALOPRAM [Concomitant]
     Active Substance: CITALOPRAM HYDROBROMIDE
  13. AMITRIPTYLINE [Concomitant]
     Active Substance: AMITRIPTYLINE

REACTIONS (1)
  - Oedema peripheral [Unknown]
